FAERS Safety Report 11220196 (Version 1)
Quarter: 2015Q2

REPORT INFORMATION
  Report Type: Spontaneous
  Country: None (occurrence: None)
  Receive Date: 20150624
  Receipt Date: 20150624
  Transmission Date: 20150821
  Serious: Yes (Other)
  Sender: FDA-Public Use
  Company Number: None

PATIENT
  Age: 25 Year
  Sex: Female
  Weight: 65.77 kg

DRUGS (1)
  1. NEXPLANON [Suspect]
     Active Substance: ETONOGESTREL
     Indication: CONTRACEPTION
     Dosage: 3 YEARS  GIVEN INTO/UNDER THE SKIN
     Route: 058
     Dates: start: 20130304, end: 20150619

REACTIONS (8)
  - Decreased appetite [None]
  - Amnesia [None]
  - Vulvovaginal swelling [None]
  - Menorrhagia [None]
  - Depression [None]
  - Weight increased [None]
  - Mood swings [None]
  - Abdominal pain upper [None]
